FAERS Safety Report 9535773 (Version 2)
Quarter: 2013Q3

REPORT INFORMATION
  Report Type: Spontaneous
  Country: US (occurrence: US)
  Receive Date: 20130919
  Receipt Date: 20130919
  Transmission Date: 20140515
  Serious: Yes (Hospitalization, Other)
  Sender: FDA-Public Use
  Company Number: US-009507513-2009-194843-NL

PATIENT
  Sex: Female
  Weight: 64.86 kg

DRUGS (26)
  1. NUVARING [Suspect]
     Indication: MENSTRUAL CYCLE MANAGEMENT
     Dosage: DOSE TEXT: 3 WEEKS IN; 1 WEEK OUT, CONTINUING: NO
     Dates: start: 200803, end: 20081215
  2. NUVARING [Suspect]
     Indication: METABOLIC ABNORMALITY MANAGEMENT
  3. NUVARING [Suspect]
     Indication: PREMENSTRUAL SYNDROME
  4. NUVARING [Suspect]
     Indication: ACNE
  5. ESTROGENS [Suspect]
     Indication: ACNE
     Dates: start: 2008, end: 2008
  6. ZYRTEC [Concomitant]
     Indication: SEASONAL ALLERGY
     Dosage: 10 MG, QD
     Dates: start: 2008, end: 2009
  7. TYLENOL SINUS (ACETAMINOPHEN (+) PSEUDOEPHEDRINE HYDROCHLORIDE) [Concomitant]
     Indication: SEASONAL ALLERGY
     Dosage: 2 CAPLETS EVERY 4 HOURS FOR SINUS PRESSURE
     Dates: start: 2008, end: 2009
  8. FLONASE [Concomitant]
     Indication: RHINITIS ALLERGIC
     Dosage: 2 SP QD
  9. FLAGYL [Concomitant]
     Indication: ABDOMINAL PAIN
  10. CLARITIN [Concomitant]
     Dosage: 10 MG, QD
     Route: 048
  11. METHYLPREDNISOLONE [Concomitant]
     Dosage: 4 MG, UNK
     Dates: start: 20080422
  12. PAROXETINE [Concomitant]
     Dosage: 10 MG, UNK
     Dates: start: 20080430
  13. AZITHROMYCIN [Concomitant]
     Dosage: 250 MG, UNK
     Dates: start: 20080505
  14. SCOPOLAMINE [Concomitant]
     Dosage: EVERY 72 HRS
     Dates: start: 20081007
  15. AZITHROMYCIN [Concomitant]
     Dosage: 250 MG, UNK
     Dates: start: 20080908
  16. ESTROGEL [Concomitant]
     Dosage: 1 MG, UNK
     Dates: start: 20080807
  17. PROVENTIL [Concomitant]
     Dosage: 90 ?G, PRN
     Dates: start: 20081218
  18. AVELOX [Concomitant]
     Dosage: 400 MG, UNK
     Dates: start: 20081218
  19. METRONIDAZOLE [Concomitant]
     Dosage: 500 MG, UNK
     Dates: start: 20081223
  20. ACETAMINOPHEN (+) HYDROCODONE BITARTRATE [Concomitant]
     Dosage: 7.5-650
     Dates: start: 20081223
  21. TYLENOL [Concomitant]
     Indication: PRODUCT USED FOR UNKNOWN INDICATION
     Dosage: UNK UNK, BID
  22. ALBUTEROL [Concomitant]
     Indication: PRODUCT USED FOR UNKNOWN INDICATION
     Dosage: UNK UNK, PRN
  23. AFRIN (OXYMETAZOLINE HYDROCHLORIDE) [Concomitant]
     Indication: PRODUCT USED FOR UNKNOWN INDICATION
     Dosage: UNK UNK, HS
  24. PRILOSEC [Concomitant]
     Indication: PRODUCT USED FOR UNKNOWN INDICATION
     Dosage: UNK UNK, PRN
  25. DOXYCYCLINE [Concomitant]
     Indication: ACNE
     Dosage: UNK UNK, PRN
  26. FLUTICASONE [Concomitant]
     Indication: PRODUCT USED FOR UNKNOWN INDICATION
     Dosage: 2 SP EN QD

REACTIONS (7)
  - Deep vein thrombosis [Recovering/Resolving]
  - Pulmonary embolism [Unknown]
  - Metrorrhagia [Unknown]
  - Off label use [Unknown]
  - Kidney small [Unknown]
  - Renal atrophy [Unknown]
  - Gallbladder polyp [Unknown]
